FAERS Safety Report 14942838 (Version 1)
Quarter: 2018Q2

REPORT INFORMATION
  Report Type: Spontaneous
  Country: NL (occurrence: NL)
  Receive Date: 20180528
  Receipt Date: 20180528
  Transmission Date: 20180711
  Serious: Yes (Other)
  Sender: FDA-Public Use
  Company Number: NL-ACCORD-067383

PATIENT
  Age: 84 Year
  Sex: Male

DRUGS (1)
  1. CARBIDOPA/LEVODOPA [Suspect]
     Active Substance: CARBIDOPA\LEVODOPA
     Indication: PARKINSON^S DISEASE
     Dosage: 125 MG, TID (ONE AND A HALF TABLETS) ?375 MG

REACTIONS (5)
  - Drug prescribing error [Unknown]
  - Ageusia [Unknown]
  - Diplopia [Unknown]
  - Wrong technique in product usage process [Unknown]
  - Parkinson^s disease [Unknown]
